FAERS Safety Report 5025183-4 (Version None)
Quarter: 2006Q2

REPORT INFORMATION
  Report Type: 
  Country: None (occurrence: None)
  Receive Date: 20060613
  Receipt Date: 19951120
  Transmission Date: 20061013
  Serious: Yes (Death)
  Sender: FDA-Public Use
  Company Number: GB-GLAXOSMITHKLINE-B0014421A

PATIENT
  Age: 54 Year
  Sex: Female
  Weight: 71 kg

DRUGS (7)
  1. ATRACURIUM BESYLATE [Suspect]
     Route: 065
  2. CHLORPHENIRAMINE MALEATE [Suspect]
     Route: 048
  3. DESIPRAMINE HCL [Suspect]
     Route: 048
  4. PETHIDINE [Suspect]
     Dosage: .25MG PER DAY
     Route: 030
  5. METOCLOPRAMIDE [Suspect]
     Route: 048
  6. IMIPRAMINE [Suspect]
     Route: 048
  7. ACE INHIBITOR [Concomitant]
     Route: 065

REACTIONS (3)
  - CARDIAC ARREST [None]
  - CIRCULATORY COLLAPSE [None]
  - MYOCARDITIS [None]
